FAERS Safety Report 4710527-0 (Version None)
Quarter: 2005Q3

REPORT INFORMATION
  Report Type: 
  Country: None (occurrence: None)
  Receive Date: 20050707
  Receipt Date: 20050628
  Transmission Date: 20060218
  Serious: Yes (Hospitalization)
  Sender: FDA-Public Use
  Company Number: 2005093378

PATIENT
  Age: 67 Year
  Sex: Male

DRUGS (10)
  1. NORVASC [Suspect]
     Indication: ILL-DEFINED DISORDER
     Dosage: ORAL
     Route: 048
     Dates: start: 20000101, end: 20050614
  2. CARVEDILOL [Suspect]
     Indication: ILL-DEFINED DISORDER
     Dosage: ORAL
     Route: 048
     Dates: start: 20000101, end: 20050614
  3. LENDORM [Concomitant]
  4. LORCAM (LORNOXICAM) [Concomitant]
  5. RINLAXER (CHLORPHENESIN CARBAMATE) [Concomitant]
  6. SOLON (SOFALCONE) [Concomitant]
  7. CERNILTON (CERNITIN GBX, CERNITIN T60) [Concomitant]
  8. HARNAL (TAMSULOSIN HYDROCHLORIDE) [Concomitant]
  9. HERBAL PREPARATION (HERBAL PREPARATION) [Concomitant]
  10. COENZYME Q10 [Concomitant]

REACTIONS (5)
  - ATRIOVENTRICULAR BLOCK [None]
  - BRADYCARDIA [None]
  - DIZZINESS [None]
  - DYSPNOEA [None]
  - GLYCOSYLATED HAEMOGLOBIN INCREASED [None]
